FAERS Safety Report 22084014 (Version 3)
Quarter: 2023Q2

REPORT INFORMATION
  Report Type: Spontaneous
  Country: US (occurrence: None)
  Receive Date: 20230310
  Receipt Date: 20230426
  Transmission Date: 20230721
  Serious: Yes (Hospitalization)
  Sender: FDA-Public Use
  Company Number: US-ROCHE-3304213

PATIENT
  Age: 2 Year
  Sex: Male
  Weight: 12.5 kg

DRUGS (3)
  1. HEMLIBRA [Suspect]
     Active Substance: EMICIZUMAB-KXWH
     Indication: Factor VIII deficiency
     Dosage: FORM STRENGTH : 60MG/0.4ML
     Route: 058
     Dates: start: 20230207
  2. HEMLIBRA [Suspect]
     Active Substance: EMICIZUMAB-KXWH
     Indication: Factor VIII deficiency
  3. AMICAR [Concomitant]
     Active Substance: AMINOCAPROIC ACID
     Indication: Mucosal haemorrhage
     Route: 048
     Dates: start: 20230224, end: 20230301

REACTIONS (1)
  - Tonsillar haemorrhage [Recovered/Resolved]

NARRATIVE: CASE EVENT DATE: 20230224
